FAERS Safety Report 6568287-7 (Version None)
Quarter: 2010Q1

REPORT INFORMATION
  Report Type: 
  Country: None (occurrence: None)
  Receive Date: 20100203
  Receipt Date: 20100120
  Transmission Date: 20100710
  Serious: Yes (Other)
  Sender: FDA-Public Use
  Company Number: FR-BAYER-201012756GPV

PATIENT
  Age: 24 Year
  Sex: Female

DRUGS (1)
  1. ULTRAVIST 370 [Suspect]
     Indication: UROGRAM
     Dosage: TOTAL DAILY DOSE: 50 ML
     Route: 042
     Dates: start: 20090422, end: 20090422

REACTIONS (2)
  - ABORTION SPONTANEOUS [None]
  - NO ADVERSE EVENT [None]
